FAERS Safety Report 7959138-4 (Version None)
Quarter: 2011Q4

REPORT INFORMATION
  Report Type: 
  Country: None (occurrence: None)
  Receive Date: 20111206
  Receipt Date: 20111123
  Transmission Date: 20120403
  Serious: Yes (Hospitalization)
  Sender: FDA-Public Use
  Company Number: SE-ELI_LILLY_AND_COMPANY-SE201111002030

PATIENT
  Sex: Female

DRUGS (9)
  1. LYRICA [Concomitant]
     Dosage: 150 MG, UNK
  2. ATARAX [Concomitant]
     Dosage: 25 MG, UNK
  3. NICORETTE [Concomitant]
     Dosage: 2 MG, UNK
  4. ZYPREXA [Suspect]
     Indication: SCHIZOPHRENIA
     Dosage: 5 MG, QD
     Route: 048
     Dates: start: 20101219
  5. SPIRIVA [Concomitant]
     Dosage: 18 UG, UNK
  6. LAMOTRIGIN ACTAVIS [Concomitant]
     Dosage: 100 MG, UNK
  7. PULMICORT [Concomitant]
     Dosage: 400 UG, UNK
  8. FORMOTEROL FUMARATE [Concomitant]
     Dosage: 400 UG, UNK
     Route: 055
  9. ALPRAZOLAM [Concomitant]
     Dosage: 1 MG, UNK

REACTIONS (3)
  - ANTIPHOSPHOLIPID ANTIBODIES POSITIVE [None]
  - PULMONARY EMBOLISM [None]
  - PROTEIN S DECREASED [None]
